FAERS Safety Report 9410139 (Version 1)
Quarter: 2013Q2

REPORT INFORMATION
  Report Type: Spontaneous
  Country: US (occurrence: None)
  Receive Date: 20130419
  Receipt Date: 20130419
  Transmission Date: 20140414
  Serious: Yes (Life-Threatening)
  Sender: FDA-Public Use
  Company Number: RAE111510TG001

PATIENT
  Age: 11 Month
  Sex: Male
  Weight: 11.34 kg

DRUGS (1)
  1. HYLAND^S TEETHING TABLETS [Suspect]
     Indication: TEETHING
     Dosage: 1-3 TABS 2-3 X DAY X 4 MO.

REACTIONS (2)
  - Wheezing [None]
  - Dyspnoea [None]
